FAERS Safety Report 5037941-0 (Version None)
Quarter: 2006Q2

REPORT INFORMATION
  Report Type: 
  Country: None (occurrence: None)
  Receive Date: 20060626
  Receipt Date: 20060602
  Transmission Date: 20061013
  Serious: Yes (Hospitalization)
  Sender: FDA-Public Use
  Company Number: 2005-01124

PATIENT
  Age: 44 Year
  Sex: Female
  Weight: 46 kg

DRUGS (9)
  1. VELCADE [Suspect]
     Indication: MULTIPLE MYELOMA
     Dosage: 1.30 MG/M2, INTRAVENOUS
     Route: 042
     Dates: start: 20050419
  2. DOXIL [Suspect]
     Indication: MULTIPLE MYELOMA
     Dosage: 23.00 MG/M2, INTRAVENOUS
     Route: 042
     Dates: start: 20050513
  3. DIPHENHYDRAMINE HCL [Concomitant]
  4. ACETAMINOPHEN [Concomitant]
  5. SALBUTAMOL (SALBUTAMOL) [Concomitant]
  6. ENALAPRIL MALEATE [Concomitant]
  7. SUCRALFATE [Concomitant]
  8. ALLOPURINOL [Concomitant]
  9. CALCIUM (CALCIUM) [Concomitant]

REACTIONS (5)
  - INFECTION [None]
  - INFLUENZA LIKE ILLNESS [None]
  - MUSCULAR WEAKNESS [None]
  - RENAL FAILURE ACUTE [None]
  - TUMOUR LYSIS SYNDROME [None]
